FAERS Safety Report 6357308-2 (Version None)
Quarter: 2009Q3

REPORT INFORMATION
  Report Type: 
  Country: None (occurrence: None)
  Receive Date: 20090916
  Receipt Date: 20090909
  Transmission Date: 20100115
  Serious: Yes (Hospitalization, Other)
  Sender: FDA-Public Use
  Company Number: PHEH2007US03988

PATIENT
  Sex: Male
  Weight: 93.424 kg

DRUGS (6)
  1. ELIDEL [Suspect]
     Indication: ECZEMA
     Route: 061
     Dates: start: 20010101
  2. ELIDEL [Suspect]
     Dates: start: 20050101
  3. HYDROCODONE [Concomitant]
  4. HYDROXYZINE [Concomitant]
  5. CHONDROITIN A [Concomitant]
  6. MULTI-VITAMINS [Concomitant]

REACTIONS (30)
  - BONE MARROW TRANSPLANT [None]
  - BRONCHITIS [None]
  - CATARACT [None]
  - CATHETER RELATED INFECTION [None]
  - DERMATITIS ATOPIC [None]
  - DERMATITIS CONTACT [None]
  - DRUG INEFFECTIVE [None]
  - DRY EYE [None]
  - ECZEMA [None]
  - EYE PAIN [None]
  - HEPATIC STEATOSIS [None]
  - HERPES ZOSTER [None]
  - LEFT VENTRICULAR HYPERTROPHY [None]
  - MIDDLE INSOMNIA [None]
  - MULTIPLE MYELOMA [None]
  - MYODESOPSIA [None]
  - NEUROPATHY PERIPHERAL [None]
  - OSTEOARTHRITIS [None]
  - PAIN [None]
  - PHARYNGITIS [None]
  - PHOTOPSIA [None]
  - PLASMACYTOMA [None]
  - REFUSAL OF TREATMENT BY PATIENT [None]
  - ROSACEA [None]
  - SEBORRHOEIC DERMATITIS [None]
  - STAPHYLOCOCCAL BACTERAEMIA [None]
  - STEM CELL TRANSPLANT [None]
  - TYPE 2 DIABETES MELLITUS [None]
  - VISION BLURRED [None]
  - VISUAL IMPAIRMENT [None]
